FAERS Safety Report 4659173-8 (Version None)
Quarter: 2005Q2

REPORT INFORMATION
  Report Type: 
  Country: None (occurrence: None)
  Receive Date: 20050510
  Receipt Date: 20050506
  Transmission Date: 20051028
  Serious: Yes (Hospitalization, Disabling, Other)
  Sender: FDA-Public Use
  Company Number: USA-2005-0020067

PATIENT
  Age: 50 Year
  Sex: Female

DRUGS (2)
  1. OXYCONTIN [Suspect]
     Dosage: MG
  2. METHADONE HCL [Suspect]
     Dosage: MG

REACTIONS (7)
  - BRAIN DAMAGE [None]
  - HYPOXIC ENCEPHALOPATHY [None]
  - INTENTIONAL MISUSE [None]
  - MULTIPLE DRUG OVERDOSE [None]
  - OVERDOSE [None]
  - POLYSUBSTANCE ABUSE [None]
  - SELF-MEDICATION [None]
